FAERS Safety Report 8158417-8 (Version None)
Quarter: 2012Q1

REPORT INFORMATION
  Report Type: 
  Country: None (occurrence: None)
  Receive Date: 20120223
  Receipt Date: 20120213
  Transmission Date: 20120608
  Serious: Yes (Hospitalization)
  Sender: FDA-Public Use
  Company Number: DE-JNJFOC-20120206912

PATIENT
  Age: 58 Year
  Sex: Male

DRUGS (5)
  1. REMICADE [Suspect]
     Route: 042
     Dates: start: 20120101
  2. PREDNISONE TAB [Concomitant]
     Route: 065
  3. MESALAMINE [Concomitant]
     Route: 065
  4. REMICADE [Suspect]
     Indication: COLITIS ULCERATIVE
     Route: 042
     Dates: start: 20120210
  5. PURINETHOL [Concomitant]
     Route: 065

REACTIONS (8)
  - PYREXIA [None]
  - VERTIGO [None]
  - TACHYCARDIA [None]
  - NAUSEA [None]
  - BLOOD PRESSURE DECREASED [None]
  - CHILLS [None]
  - BACK PAIN [None]
  - INFUSION RELATED REACTION [None]
